FAERS Safety Report 17388088 (Version 1)
Quarter: 2020Q1

REPORT INFORMATION
  Report Type: Report from Study
  Country: US (occurrence: US)
  Receive Date: 20200207
  Receipt Date: 20200207
  Transmission Date: 20200409
  Serious: Yes (Death)
  Sender: FDA-Public Use
  Company Number: US-TAIHO ONCOLOGY  INC-EU-2020-00314

PATIENT
  Age: 73 Year
  Sex: Female
  Weight: 53.57 kg

DRUGS (13)
  1. LONSURF [Suspect]
     Active Substance: TIPIRACIL HYDROCHLORIDE\TRIFLURIDINE
     Indication: GASTRIC CANCER
     Dosage: CYCLE 4
     Route: 048
     Dates: start: 20190909
  2. IMODIUM AD [Concomitant]
     Active Substance: LOPERAMIDE HYDROCHLORIDE
  3. MELATONIN [Concomitant]
     Active Substance: MELATONIN
  4. LOSARTAN. [Concomitant]
     Active Substance: LOSARTAN
     Dosage: NI
  5. PROLIA [Concomitant]
     Active Substance: DENOSUMAB
     Dosage: NI
  6. TYLENOL [Concomitant]
     Active Substance: ACETAMINOPHEN
     Dosage: NI
  7. KEYTRUDA [Concomitant]
     Active Substance: PEMBROLIZUMAB
     Dosage: NI
  8. BACLOFEN. [Concomitant]
     Active Substance: BACLOFEN
     Dosage: NI
  9. VITAMIN D3 [Concomitant]
     Active Substance: CHOLECALCIFEROL
     Dosage: NI
  10. OXYBUTYNIN. [Concomitant]
     Active Substance: OXYBUTYNIN CHLORIDE
     Dosage: NI
  11. BENADRYL [Concomitant]
     Active Substance: DIPHENHYDRAMINE HYDROCHLORIDE
     Dosage: NI
  12. LEVOTHYROXINE. [Concomitant]
     Active Substance: LEVOTHYROXINE
     Dosage: NI
  13. CLARITIN [Concomitant]
     Active Substance: LORATADINE
     Dosage: NI

REACTIONS (1)
  - Death [Fatal]

NARRATIVE: CASE EVENT DATE: 20200119
